FAERS Safety Report 15281955 (Version 1)
Quarter: 2018Q3

REPORT INFORMATION
  Report Type: Spontaneous
  Country: US (occurrence: US)
  Receive Date: 20180731
  Receipt Date: 20180731
  Transmission Date: 20181010
  Serious: Yes (Disabling)
  Sender: FDA-Public Use
  Company Number: None

PATIENT
  Age: 40 Year
  Sex: Female
  Weight: 76.5 kg

DRUGS (2)
  1. CIPROFLOXACIN. [Suspect]
     Active Substance: CIPROFLOXACIN
     Indication: CYSTITIS
     Dates: start: 20160801, end: 20160803
  2. TIROSINT THYROID [Concomitant]

REACTIONS (2)
  - Peripheral coldness [None]
  - Tendonitis [None]

NARRATIVE: CASE EVENT DATE: 20160803
